FAERS Safety Report 5842302-8 (Version None)
Quarter: 2008Q3

REPORT INFORMATION
  Report Type: 
  Country: None (occurrence: None)
  Receive Date: 20080812
  Receipt Date: 20080731
  Transmission Date: 20090109
  Serious: Yes (Hospitalization, Other)
  Sender: FDA-Public Use
  Company Number: JP-SANOFI-SYNTHELABO-A01200806077

PATIENT
  Sex: Male

DRUGS (23)
  1. AZD2171 [Suspect]
     Dosage: UNK
     Route: 048
     Dates: start: 20080221, end: 20080513
  2. TWINPAL [Concomitant]
     Indication: ANOREXIA
     Route: 041
     Dates: start: 20080605, end: 20080623
  3. MORPHINE HCL ELIXIR [Concomitant]
     Indication: CANCER PAIN
     Route: 042
     Dates: start: 20080605, end: 20080612
  4. LACTEC [Concomitant]
     Indication: ANOREXIA
     Route: 041
     Dates: start: 20080513, end: 20080524
  5. MOBIC [Concomitant]
     Indication: CANCER PAIN
     Route: 048
     Dates: start: 20080508
  6. BLOPRESS [Concomitant]
     Indication: HYPERTENSION
     Route: 048
     Dates: start: 20080508, end: 20080514
  7. AMLODIPINE BESYLATE [Concomitant]
     Indication: HYPERTENSION
     Route: 048
     Dates: start: 20080301, end: 20080514
  8. AMLODIPINE BESYLATE [Concomitant]
     Route: 048
     Dates: start: 20080515
  9. LASIX [Concomitant]
     Indication: OEDEMA
     Route: 048
     Dates: start: 20080301, end: 20080508
  10. LASIX [Concomitant]
     Route: 048
     Dates: start: 20080509
  11. LASIX [Concomitant]
     Route: 042
     Dates: start: 20080513
  12. PRIMPERAN TAB [Concomitant]
     Indication: VOMITING
     Route: 048
     Dates: start: 20080201, end: 20080519
  13. FERROMIA [Concomitant]
     Indication: ANAEMIA
     Route: 048
     Dates: start: 20080201, end: 20080511
  14. MAGMITT [Concomitant]
     Indication: CONSTIPATION
     Route: 048
  15. PROTECADIN [Concomitant]
     Indication: PROPHYLAXIS AGAINST GASTROINTESTINAL ULCER
     Route: 048
  16. GABAPEN [Concomitant]
     Indication: CANCER PAIN
     Route: 048
  17. MS-TWICELON [Concomitant]
     Indication: CANCER PAIN
     Route: 048
     Dates: end: 20080604
  18. DECADRON SRC [Concomitant]
     Indication: PREMEDICATION
     Dosage: 8 MG
     Route: 041
     Dates: start: 20080221, end: 20080529
  19. FLUOROURACIL [Suspect]
     Dosage: 477MG/BODY=289 MG/M2 IN BOLUS THEN 2880MG/BODY=1745.5 MG/M2 AS INFUSION
     Route: 040
     Dates: start: 20080306, end: 20080306
  20. FLUOROURACIL [Suspect]
     Route: 041
     Dates: start: 20080306, end: 20080307
  21. KYTRIL [Concomitant]
     Indication: PREMEDICATION
     Dosage: 3 MG
     Route: 041
     Dates: start: 20080221, end: 20080529
  22. ELPLAT [Suspect]
     Indication: COLON CANCER
     Route: 041
     Dates: start: 20080306, end: 20080306
  23. ISOVORIN [Suspect]
     Route: 041
     Dates: start: 20080306, end: 20080306

REACTIONS (5)
  - ABDOMINAL PAIN [None]
  - DISORIENTATION [None]
  - LEUKOPENIA [None]
  - THROMBOCYTOPENIA [None]
  - VOMITING [None]
